FAERS Safety Report 6804283-X (Version None)
Quarter: 2010Q2

REPORT INFORMATION
  Report Type: 
  Country: None (occurrence: None)
  Receive Date: 20100628
  Receipt Date: 20070223
  Transmission Date: 20101027
  Serious: No
  Sender: FDA-Public Use
  Company Number: US-PFIZER INC-2007005694

PATIENT
  Sex: Female
  Weight: 68.04 kg

DRUGS (6)
  1. XALATAN [Suspect]
     Indication: INTRAOCULAR PRESSURE INCREASED
     Dates: start: 20060501
  2. SYNTHROID [Concomitant]
  3. POTASSIUM [Concomitant]
  4. LISINOPRIL [Concomitant]
  5. DIURETICS [Concomitant]
  6. LOVASTATIN [Concomitant]

REACTIONS (2)
  - EYE IRRITATION [None]
  - EYE PRURITUS [None]
